FAERS Safety Report 24188216 (Version 1)
Quarter: 2024Q3

REPORT INFORMATION
  Report Type: Spontaneous
  Country: US (occurrence: US)
  Receive Date: 20240808
  Receipt Date: 20240808
  Transmission Date: 20241017
  Serious: No
  Sender: OTSUKA
  Company Number: US-OTSUKA-2023_019900

PATIENT
  Sex: Female

DRUGS (2)
  1. ABILIFY [Suspect]
     Active Substance: ARIPIPRAZOLE
     Indication: Depression
     Dosage: UNK, QD
     Route: 065
  2. TRINTELLIX [Suspect]
     Active Substance: VORTIOXETINE HYDROBROMIDE
     Indication: Depression
     Dosage: 20 MG, QD
     Route: 065
     Dates: start: 201805

REACTIONS (5)
  - Loss of personal independence in daily activities [Unknown]
  - Initial insomnia [Unknown]
  - Feeling abnormal [Unknown]
  - Depressed mood [Unknown]
  - Drug ineffective [Unknown]
